FAERS Safety Report 22871439 (Version 2)
Quarter: 2023Q4

REPORT INFORMATION
  Report Type: Spontaneous
  Country: US (occurrence: US)
  Receive Date: 20230828
  Receipt Date: 20231130
  Transmission Date: 20240110
  Serious: No
  Sender: FDA-Public Use
  Company Number: US-APELLIS PHARMACEUTICALS-APL-2023-002640

PATIENT
  Age: 98 Year
  Sex: Female

DRUGS (2)
  1. SYFOVRE [Suspect]
     Active Substance: PEGCETACOPLAN
     Indication: Dry age-related macular degeneration
     Dosage: 0.1 MILLILITER IN 150 MG/ML SOLUTION
     Dates: start: 20230425
  2. SYFOVRE [Suspect]
     Active Substance: PEGCETACOPLAN
     Dosage: UNK, SECOND DOSE
     Route: 065
     Dates: start: 20230622

REACTIONS (1)
  - Intra-ocular injection complication [Recovered/Resolved]

NARRATIVE: CASE EVENT DATE: 20230425
